FAERS Safety Report 8515268-X (Version None)
Quarter: 2012Q3

REPORT INFORMATION
  Report Type: 
  Country: None (occurrence: None)
  Receive Date: 20120705
  Receipt Date: 20120620
  Transmission Date: 20120928
  Serious: Yes (Hospitalization, Disabling, Other)
  Sender: FDA-Public Use
  Company Number: 2011MA004522

PATIENT
  Sex: Female
  Weight: 49.8957 kg

DRUGS (57)
  1. DESYREL [Concomitant]
  2. DILAUDID [Concomitant]
  3. HYOSCYAMINE [Concomitant]
  4. LEVAQUIN [Concomitant]
  5. LYRICA [Concomitant]
  6. PERCOCET [Concomitant]
  7. TEMAZEPAM [Concomitant]
  8. VITAMIN E [Concomitant]
  9. ZOLOFT [Concomitant]
  10. ATENOLOL [Concomitant]
  11. AVAPRO [Concomitant]
  12. DIOVAN HCT [Concomitant]
  13. ERYTHROMYCIN [Concomitant]
  14. FLUOXETINE HCL [Concomitant]
  15. HYDROCHLOROTHIAZIDE [Concomitant]
  16. LIDOCAINE [Concomitant]
  17. LORTAB [Concomitant]
  18. PRILOSEC [Concomitant]
  19. AMITIZA [Concomitant]
  20. BUPROPION HYDROCHLORIDE [Concomitant]
  21. CEPHALEXIN [Concomitant]
  22. DIAZEPAM [Concomitant]
  23. DICYCLOMINE [Concomitant]
  24. LIDODERM [Concomitant]
  25. METHOCARBAMOL [Concomitant]
  26. PREVACID [Concomitant]
  27. PROVENTIL [Concomitant]
  28. VICODIN [Concomitant]
  29. BOTOX [Concomitant]
  30. ERYTHROMYCIN ETHYLSUCCINATE [Concomitant]
  31. FUROSEMIDE [Concomitant]
  32. LISINOPRIL [Concomitant]
  33. TENORMIN W/CHLORTHALIDONE [Concomitant]
  34. ALPRAZOLAM [Concomitant]
  35. CEFUROXIME [Concomitant]
  36. CHLORDIAZEPOXIDE [Concomitant]
  37. CYMBALTA [Concomitant]
  38. HYDROCODONE [Concomitant]
  39. KLOR-CON [Concomitant]
  40. PILOCARPINE [Concomitant]
  41. AMANTADINE HCL [Concomitant]
  42. GUAIFENESIN W/CODEINE [Concomitant]
  43. OXYCONTIN [Concomitant]
  44. SYMAX DUOTAB [Concomitant]
  45. TRAMADOL HYDROCHLORIDE [Concomitant]
  46. FENTANYL [Concomitant]
  47. KLONOPIN [Concomitant]
  48. MILK OF MAGNESIA TAB [Concomitant]
  49. MIRALAX [Concomitant]
  50. PROTONIX [Concomitant]
  51. VITEYES [Concomitant]
  52. METOCLOPRAMIDE [Suspect]
     Indication: GASTROOESOPHAGEAL REFLUX DISEASE
     Dosage: 10 MG
     Dates: start: 20060501, end: 20090601
  53. METOCLOPRAMIDE [Suspect]
     Indication: IMPAIRED GASTRIC EMPTYING
     Dosage: 10 MG
     Dates: start: 20060501, end: 20090601
  54. AVINZA [Concomitant]
  55. DOMPERIDONE [Concomitant]
  56. HYDROMORPHONE HCL [Concomitant]
  57. TRIAMTERENE W/HCTC [Concomitant]

REACTIONS (109)
  - UNEVALUABLE EVENT [None]
  - EXTRAPYRAMIDAL DISORDER [None]
  - COGWHEEL RIGIDITY [None]
  - SUBDURAL HAEMATOMA [None]
  - PROTHROMBIN TIME PROLONGED [None]
  - HEADACHE [None]
  - ABDOMINAL DISTENSION [None]
  - SPINAL DISORDER [None]
  - COUGH [None]
  - NAUSEA [None]
  - RENAL FAILURE ACUTE [None]
  - BLOOD ALBUMIN DECREASED [None]
  - DYSPEPSIA [None]
  - IRRITABLE BOWEL SYNDROME [None]
  - BILE DUCT STONE [None]
  - BRADYKINESIA [None]
  - MULTIPLE SYSTEM ATROPHY [None]
  - CEREBRAL ATROPHY [None]
  - CLAVICLE FRACTURE [None]
  - PAIN IN EXTREMITY [None]
  - OEDEMA [None]
  - FLATULENCE [None]
  - HAEMORRHAGIC DISORDER [None]
  - DIZZINESS [None]
  - EMOTIONAL DISTRESS [None]
  - MENTAL DISORDER [None]
  - IMPAIRED SELF-CARE [None]
  - PANCREATIC DISORDER [None]
  - PROTEIN TOTAL DECREASED [None]
  - AKATHISIA [None]
  - MULTIPLE INJURIES [None]
  - WHITE BLOOD CELL COUNT INCREASED [None]
  - WALKING AID USER [None]
  - CRYING [None]
  - FAMILY STRESS [None]
  - BODY HEIGHT DECREASED [None]
  - DRUG DEPENDENCE [None]
  - ABNORMAL WEIGHT GAIN [None]
  - ABDOMINAL PAIN [None]
  - HYPOREFLEXIA [None]
  - FUNCTIONAL GASTROINTESTINAL DISORDER [None]
  - PANCREAS LIPOMATOSIS [None]
  - FALL [None]
  - BRADYPHRENIA [None]
  - CEREBRAL VENTRICLE DILATATION [None]
  - CSF PROTEIN INCREASED [None]
  - HEAD INJURY [None]
  - NECK PAIN [None]
  - DYSPHAGIA [None]
  - INSOMNIA [None]
  - NEUROPATHY PERIPHERAL [None]
  - MACULAR DEGENERATION [None]
  - VOMITING [None]
  - DIARRHOEA [None]
  - HEPATIC STEATOSIS [None]
  - CHOLECYSTITIS [None]
  - SPHINCTER OF ODDI DYSFUNCTION [None]
  - PROCTALGIA [None]
  - PARKINSONISM [None]
  - STRESS [None]
  - THINKING ABNORMAL [None]
  - DYSARTHRIA [None]
  - DEPRESSION [None]
  - FATIGUE [None]
  - WHEEZING [None]
  - RADICULOPATHY [None]
  - ANXIETY [None]
  - ASTHENIA [None]
  - TREMOR [None]
  - ODYNOPHAGIA [None]
  - GASTRITIS [None]
  - TARDIVE DYSKINESIA [None]
  - TREATMENT FAILURE [None]
  - NORMAL PRESSURE HYDROCEPHALUS [None]
  - FRUSTRATION [None]
  - FEELING OF DESPAIR [None]
  - EMOTIONAL DISORDER [None]
  - OESOPHAGITIS [None]
  - HYPOTENSION [None]
  - ALCOHOL ABUSE [None]
  - DYSMENORRHOEA [None]
  - ERUCTATION [None]
  - IMPAIRED GASTRIC EMPTYING [None]
  - DYSKINESIA [None]
  - RED BLOOD CELL COUNT DECREASED [None]
  - SPINAL FUSION SURGERY [None]
  - ATAXIA [None]
  - APHAGIA [None]
  - CARPAL TUNNEL DECOMPRESSION [None]
  - GENERAL PHYSICAL HEALTH DETERIORATION [None]
  - JOINT DISLOCATION [None]
  - IMPAIRED WORK ABILITY [None]
  - INADEQUATE ANALGESIA [None]
  - INCORRECT DRUG ADMINISTRATION DURATION [None]
  - MOTOR DYSFUNCTION [None]
  - BLOOD IRON DECREASED [None]
  - CONTUSION [None]
  - CONSTIPATION [None]
  - GASTROOESOPHAGEAL REFLUX DISEASE [None]
  - ECONOMIC PROBLEM [None]
  - PEPTIC ULCER [None]
  - RECTAL HAEMORRHAGE [None]
  - DYSPHONIA [None]
  - TEARFULNESS [None]
  - TONGUE BITING [None]
  - HYPERTENSION [None]
  - ALCOHOLIC LIVER DISEASE [None]
  - DYSPNOEA [None]
  - MYOCLONUS [None]
